FAERS Safety Report 24807687 (Version 1)
Quarter: 2025Q1

REPORT INFORMATION
  Report Type: Spontaneous
  Country: CN (occurrence: CN)
  Receive Date: 20250105
  Receipt Date: 20250105
  Transmission Date: 20250409
  Serious: Yes (Hospitalization, Other)
  Sender: BEIGENE
  Company Number: CN-BEIGENE-BGN-2024-021045

PATIENT

DRUGS (5)
  1. TISLELIZUMAB [Suspect]
     Active Substance: TISLELIZUMAB
     Indication: Cholangiocarcinoma
     Dates: start: 202408, end: 202411
  2. TISLELIZUMAB [Suspect]
     Active Substance: TISLELIZUMAB
     Route: 041
     Dates: start: 20241214
  3. CAPECITABINE [Suspect]
     Active Substance: CAPECITABINE
     Indication: Cholangiocarcinoma
     Dosage: 1 GRAM, BID
     Route: 048
     Dates: start: 20241216
  4. CATEQUENTINIB DIHYDROCHLORIDE [Suspect]
     Active Substance: CATEQUENTINIB DIHYDROCHLORIDE
     Indication: Cholangiocarcinoma
     Route: 048
     Dates: start: 202408, end: 202411
  5. CATEQUENTINIB DIHYDROCHLORIDE [Suspect]
     Active Substance: CATEQUENTINIB DIHYDROCHLORIDE
     Dosage: 8 MILLIGRAM, QD
     Route: 048
     Dates: start: 20241214

REACTIONS (3)
  - Platelet count decreased [Recovering/Resolving]
  - Intestinal obstruction [Unknown]
  - Liver abscess [Unknown]

NARRATIVE: CASE EVENT DATE: 20241201
